FAERS Safety Report 10700667 (Version 1)
Quarter: 2015Q1

REPORT INFORMATION
  Report Type: Spontaneous
  Country: FR (occurrence: FR)
  Receive Date: 20150109
  Receipt Date: 20150109
  Transmission Date: 20150721
  Serious: Yes (Other)
  Sender: FDA-Public Use
  Company Number: FR-PERRIGO-14FR012692

PATIENT
  Age: 12 Year
  Sex: Female

DRUGS (2)
  1. MORPHINE SULFATE 20 MG/ML 0L8 [Suspect]
     Active Substance: MORPHINE SULFATE
     Indication: FRACTURE
     Dosage: UNK, UNK
     Route: 065
     Dates: start: 20130723
  2. MORPHINE SULFATE 20 MG/ML 0L8 [Suspect]
     Active Substance: MORPHINE SULFATE
     Indication: JOINT DISLOCATION

REACTIONS (3)
  - Abdominal pain upper [Unknown]
  - Pancreatitis acute [Recovering/Resolving]
  - Lipase increased [Recovering/Resolving]

NARRATIVE: CASE EVENT DATE: 201307
